FAERS Safety Report 4640978-4 (Version None)
Quarter: 2005Q2

REPORT INFORMATION
  Report Type: 
  Country: None (occurrence: None)
  Receive Date: 20050421
  Receipt Date: 20050401
  Transmission Date: 20051028
  Serious: Yes (Other)
  Sender: FDA-Public Use
  Company Number: US-BOEHRINGER INGELHEIM PHARMACEUTICALS, INC.-2005-DE-01284GD

PATIENT
  Sex: Female

DRUGS (3)
  1. CLONIDINE [Suspect]
     Route: 037
     Dates: end: 20000301
  2. CLONIDINE [Suspect]
     Route: 037
     Dates: start: 20010401, end: 20040201
  3. MORPHINE [Suspect]
     Route: 037
     Dates: start: 20010401, end: 20040201

REACTIONS (8)
  - ASTHENIA [None]
  - CATHETER SITE RELATED REACTION [None]
  - DRUG EFFECT DECREASED [None]
  - GRANULOMA [None]
  - MICTURITION URGENCY [None]
  - PAIN IN EXTREMITY [None]
  - SPINAL CORD COMPRESSION [None]
  - URINARY INCONTINENCE [None]
